FAERS Safety Report 4877475-7 (Version None)
Quarter: 2006Q1

REPORT INFORMATION
  Report Type: 
  Country: None (occurrence: None)
  Receive Date: 20060109
  Receipt Date: 20051223
  Transmission Date: 20060701
  Serious: No
  Sender: FDA-Public Use
  Company Number: DE-2005-023228

PATIENT
  Age: 20 Year
  Sex: Male

DRUGS (1)
  1. BETAFERON (INTERFERON BETA - 1B) INJECTION, 250?G [Suspect]
     Dosage: 1 ML, EVERY 2D, SUBCUTANEOUS
     Route: 058
     Dates: end: 20051031

REACTIONS (1)
  - NECROSIS [None]
